FAERS Safety Report 14635671 (Version 4)
Quarter: 2018Q3

REPORT INFORMATION
  Report Type: Report from Study
  Country: DE (occurrence: DE)
  Receive Date: 20180314
  Receipt Date: 20180717
  Transmission Date: 20181010
  Serious: Yes (Death, Hospitalization)
  Sender: FDA-Public Use
  Company Number: DE-PFIZER INC-2018097054

PATIENT
  Age: 44 Year
  Sex: Female
  Weight: 61 kg

DRUGS (2)
  1. AFINITOR [Suspect]
     Active Substance: EVEROLIMUS
     Indication: BREAST CANCER METASTATIC
     Dosage: 10 MG, 1X/DAY
     Route: 048
     Dates: start: 20121210, end: 20130509
  2. EXEMESTANE. [Suspect]
     Active Substance: EXEMESTANE
     Indication: BREAST CANCER METASTATIC
     Dosage: 25 MG, 1X/DAY
     Route: 048
     Dates: start: 20121210, end: 20130509

REACTIONS (6)
  - Depression [Unknown]
  - C-reactive protein increased [Unknown]
  - Neoplasm progression [Fatal]
  - Haemoglobin decreased [Unknown]
  - Platelet count decreased [Unknown]
  - Partial seizures [Recovered/Resolved]

NARRATIVE: CASE EVENT DATE: 201212
